FAERS Safety Report 16485048 (Version 6)
Quarter: 2020Q1

REPORT INFORMATION
  Report Type: Report from Study
  Country: CA (occurrence: CA)
  Receive Date: 20190627
  Receipt Date: 20200127
  Transmission Date: 20200409
  Serious: Yes (Other)
  Sender: FDA-Public Use
  Company Number: CA-JNJFOC-20190619181

PATIENT
  Age: 46 Year
  Sex: Female
  Weight: 60 kg

DRUGS (1)
  1. REMICADE [Suspect]
     Active Substance: INFLIXIMAB
     Indication: CROHN^S DISEASE
     Dosage: ALSO REPORTED AS 300 MG
     Route: 042

REACTIONS (5)
  - Cystitis escherichia [Recovered/Resolved]
  - Lower respiratory tract infection [Recovering/Resolving]
  - Herpes zoster [Recovered/Resolved]
  - Morton^s neuralgia [Not Recovered/Not Resolved]
  - Enterovesical fistula [Unknown]

NARRATIVE: CASE EVENT DATE: 201907
